FAERS Safety Report 5565521-7 (Version None)
Quarter: 2007Q4

REPORT INFORMATION
  Report Type: 
  Country: None (occurrence: None)
  Receive Date: 20071218
  Receipt Date: 20071206
  Transmission Date: 20080405
  Serious: Yes (Other)
  Sender: FDA-Public Use
  Company Number: KR-PFIZER INC-2007103488

PATIENT
  Sex: Male

DRUGS (1)
  1. NORVASC [Suspect]
     Route: 048

REACTIONS (3)
  - ARRHYTHMIA [None]
  - HYPOACUSIS [None]
  - SHOCK [None]
